FAERS Safety Report 18891088 (Version 6)
Quarter: 2021Q1

REPORT INFORMATION
  Report Type: Report from Study
  Country: None (occurrence: ES)
  Receive Date: 20210215
  Receipt Date: 20210322
  Transmission Date: 20210420
  Serious: Yes (Hospitalization)
  Sender: FDA-Public Use
  Company Number: ES-ABBVIE-20K-144-3647118-00

PATIENT
  Age: 64 Year
  Sex: Male

DRUGS (2)
  1. DUODOPA [Suspect]
     Active Substance: CARBIDOPA\LEVODOPA
     Indication: PARKINSON^S DISEASE
     Route: 050
     Dates: start: 20150921
  2. DUODOPA [Suspect]
     Active Substance: CARBIDOPA\LEVODOPA

REACTIONS (14)
  - Pneumonia [Recovered/Resolved]
  - SARS-CoV-2 test positive [Recovered/Resolved with Sequelae]
  - Aspiration [Unknown]
  - Respiratory distress [Recovered/Resolved]
  - Nervous system disorder [Unknown]
  - Cognitive disorder [Unknown]
  - Respiratory tract infection [Not Recovered/Not Resolved]
  - Polymerase chain reaction positive [Recovered/Resolved]
  - Intentional medical device removal by patient [Unknown]
  - Device issue [Recovered/Resolved]
  - Respiratory disorder [Unknown]
  - Device dislocation [Not Recovered/Not Resolved]
  - Device occlusion [Recovered/Resolved]
  - Pyrexia [Unknown]

NARRATIVE: CASE EVENT DATE: 2020
